FAERS Safety Report 6240467-X (Version None)
Quarter: 2009Q2

REPORT INFORMATION
  Report Type: 
  Country: None (occurrence: None)
  Receive Date: 20090623
  Receipt Date: 20090309
  Transmission Date: 20091009
  Serious: No
  Sender: FDA-Public Use
  Company Number: US-ASTRAZENECA-2009UW06275

PATIENT
  Age: 8 Year
  Sex: Female

DRUGS (1)
  1. PULMICORT RESPULES [Suspect]
     Dosage: UNKNOWN
     Route: 055

REACTIONS (2)
  - DRUG DOSE OMISSION [None]
  - WHEEZING [None]
